FAERS Safety Report 25374875 (Version 1)
Quarter: 2025Q2

REPORT INFORMATION
  Report Type: Spontaneous
  Country: US (occurrence: US)
  Receive Date: 20250529
  Receipt Date: 20250529
  Transmission Date: 20250717
  Serious: Yes (Other)
  Sender: BAYER HEALTHCARE LLC
  Company Number: US-BAYER-2025A069515

PATIENT
  Age: 77 Year
  Sex: Female

DRUGS (2)
  1. LOTRIMIN ULTRA ATHLETES FOOT [Suspect]
     Active Substance: BUTENAFINE HYDROCHLORIDE
     Indication: Therapeutic skin care topical
     Dosage: UNK, QD
     Route: 061
     Dates: start: 20250518, end: 20250519
  2. TYLENOL [Concomitant]
     Active Substance: ACETAMINOPHEN

REACTIONS (1)
  - Erythema [Recovering/Resolving]

NARRATIVE: CASE EVENT DATE: 20250519
